FAERS Safety Report 20990999 (Version 1)
Quarter: 2022Q2

REPORT INFORMATION
  Report Type: Spontaneous
  Country: US (occurrence: US)
  Receive Date: 20220622
  Receipt Date: 20220622
  Transmission Date: 20220720
  Serious: No
  Sender: FDA-Public Use
  Company Number: US-Calliditas-2022CAL00138

PATIENT
  Age: 61 Year
  Sex: Male
  Weight: 95 kg

DRUGS (2)
  1. TARPEYO [Suspect]
     Active Substance: BUDESONIDE
     Indication: IgA nephropathy
     Dosage: 16 MG (4MG CAPSULES) ONCE DAILY
     Route: 050
     Dates: start: 20220303
  2. TARPEYO [Suspect]
     Active Substance: BUDESONIDE
     Indication: IgA nephropathy
     Dosage: THE MD HAS LOWERED THE DOSE TO 1 PO QD DUE TO PATIENT DEVELOPING SIDE EFFECTS FROM THE TARPEYO.
     Route: 050

REACTIONS (3)
  - Insomnia [Unknown]
  - Prescribed underdose [Unknown]
  - Adverse drug reaction [Unknown]
